FAERS Safety Report 5934694-6 (Version None)
Quarter: 2008Q4

REPORT INFORMATION
  Report Type: 
  Country: None (occurrence: None)
  Receive Date: 20081029
  Receipt Date: 20081027
  Transmission Date: 20090506
  Serious: Yes (Other)
  Sender: FDA-Public Use
  Company Number: US-ASTRAZENECA-2008UW23936

PATIENT
  Age: 80 Year
  Sex: Female
  Weight: 90.7 kg

DRUGS (3)
  1. CRESTOR [Suspect]
     Indication: BLOOD CHOLESTEROL INCREASED
     Route: 048
     Dates: start: 20081001
  2. ARICEPT [Concomitant]
  3. HYPERTENSION MEDICATION [Concomitant]

REACTIONS (2)
  - COUGH [None]
  - WHEEZING [None]
